FAERS Safety Report 18859285 (Version 1)
Quarter: 2021Q1

REPORT INFORMATION
  Report Type: Spontaneous
  Country: US (occurrence: US)
  Receive Date: 20210206
  Receipt Date: 20210206
  Transmission Date: 20210420
  Serious: Yes (Disabling)
  Sender: FDA-Public Use
  Company Number: None

PATIENT
  Age: 53 Year
  Sex: Female
  Weight: 68.04 kg

DRUGS (2)
  1. BREO ELLIPTA [Concomitant]
     Active Substance: FLUTICASONE FUROATE\VILANTEROL TRIFENATATE
  2. DOTAREM [Suspect]
     Active Substance: GADOTERATE MEGLUMINE

REACTIONS (4)
  - Rash [None]
  - Pruritus [None]
  - Thermal burn [None]
  - Pain [None]

NARRATIVE: CASE EVENT DATE: 20210206
